FAERS Safety Report 15848978 (Version 2)
Quarter: 2019Q2

REPORT INFORMATION
  Report Type: Spontaneous
  Country: JP (occurrence: JP)
  Receive Date: 20190121
  Receipt Date: 20190408
  Transmission Date: 20190711
  Serious: No
  Sender: FDA-Public Use
  Company Number: JP-PFIZER INC-2019022155

PATIENT
  Age: 58 Year
  Sex: Female
  Weight: 63.5 kg

DRUGS (6)
  1. PACLITAXEL 30MG/5ML HOSPIRA [Suspect]
     Active Substance: PACLITAXEL
     Indication: NEOPLASM
     Dosage: 290 MG, DAILY
     Route: 041
     Dates: start: 20180829, end: 20190110
  2. CARBOPLATIN. [Suspect]
     Active Substance: CARBOPLATIN
     Indication: NEOPLASM
     Dosage: 780 MG, 1X/DAY
     Route: 041
     Dates: start: 20180829, end: 20190110
  3. NEORESTAR [Suspect]
     Active Substance: CHLORPHENIRAMINE MALEATE
     Indication: ANTIALLERGIC THERAPY
     Dosage: 10 MG, 1X/DAY
     Route: 041
     Dates: start: 20180829, end: 20190110
  4. GRANISETRON [GRANISETRON HYDROCHLORIDE] [Suspect]
     Active Substance: GRANISETRON HYDROCHLORIDE
     Indication: PROPHYLAXIS
  5. DEXAMETHASONE. [Suspect]
     Active Substance: DEXAMETHASONE
     Indication: NAUSEA
     Dosage: 16.5 MG, 1X/DAY
     Route: 048
     Dates: start: 20180829, end: 20190110
  6. GRANISETRON [GRANISETRON HYDROCHLORIDE] [Suspect]
     Active Substance: GRANISETRON HYDROCHLORIDE
     Indication: NAUSEA
     Dosage: 1 MG, 1X/DAY
     Route: 041
     Dates: start: 20180829, end: 20190110

REACTIONS (3)
  - Back pain [Recovered/Resolved]
  - Proteinuria [Recovered/Resolved]
  - Haematuria [Recovered/Resolved]

NARRATIVE: CASE EVENT DATE: 20181031
